FAERS Safety Report 5141929-9 (Version None)
Quarter: 2006Q4

REPORT INFORMATION
  Report Type: 
  Country: None (occurrence: None)
  Receive Date: 20061102
  Receipt Date: 20061025
  Transmission Date: 20070319
  Serious: Yes (Death)
  Sender: FDA-Public Use
  Company Number: PHBS2006JP16689

PATIENT
  Age: 43 Year
  Sex: Male

DRUGS (2)
  1. GLEEVEC [Suspect]
     Indication: CHRONIC MYELOID LEUKAEMIA
     Dosage: 600 MG/D
     Route: 048
     Dates: start: 20061016, end: 20061023
  2. GLEEVEC [Suspect]
     Route: 048

REACTIONS (3)
  - HEADACHE [None]
  - PLATELET COUNT DECREASED [None]
  - SUBDURAL HAEMORRHAGE [None]
